FAERS Safety Report 6354074-1 (Version None)
Quarter: 2009Q3

REPORT INFORMATION
  Report Type: 
  Country: None (occurrence: None)
  Receive Date: 20090914
  Receipt Date: 20090907
  Transmission Date: 20100115
  Serious: Yes (Other)
  Sender: FDA-Public Use
  Company Number: JP-JNJFOC-20090903276

PATIENT

DRUGS (3)
  1. RISPERDAL [Suspect]
     Indication: DRUG USE FOR UNKNOWN INDICATION
     Route: 065
  2. UNSPECIFIED TRANQUILIZERS [Concomitant]
     Route: 065
  3. UNKNOWN MEDICATION [Concomitant]
     Route: 065

REACTIONS (9)
  - ABDOMINAL DISTENSION [None]
  - CONSTIPATION [None]
  - DEMENTIA [None]
  - DIABETES MELLITUS [None]
  - DYSURIA [None]
  - FACE OEDEMA [None]
  - HEPATIC CIRRHOSIS [None]
  - POLYDIPSIA [None]
  - THIRST [None]
